FAERS Safety Report 16390623 (Version 1)
Quarter: 2019Q2

REPORT INFORMATION
  Report Type: Spontaneous
  Country: JP (occurrence: JP)
  Receive Date: 20190604
  Receipt Date: 20190604
  Transmission Date: 20190711
  Serious: Yes (Other)
  Sender: FDA-Public Use
  Company Number: JP-INCYTE CORPORATION-2019IN005443

PATIENT

DRUGS (2)
  1. JAKAVI [Suspect]
     Active Substance: RUXOLITINIB
     Dosage: 5 MG, QOD (5 MG.DAY ON ALTERNATE DAYS)
     Route: 065
     Dates: start: 201702
  2. JAKAVI [Suspect]
     Active Substance: RUXOLITINIB
     Indication: MYELOFIBROSIS
     Dosage: 10 MG, QD
     Route: 065
     Dates: start: 201508

REACTIONS (3)
  - Renal disorder [Unknown]
  - Drug ineffective [Unknown]
  - Urinary tract infection [Unknown]
